FAERS Safety Report 8337940-7 (Version None)
Quarter: 2012Q2

REPORT INFORMATION
  Report Type: 
  Country: None (occurrence: None)
  Receive Date: 20120504
  Receipt Date: 20120426
  Transmission Date: 20120825
  Serious: Yes (Hospitalization, Other)
  Sender: FDA-Public Use
  Company Number: US-VERTEX PHARMACEUTICALS INC.-AE-2012-006041

PATIENT
  Sex: Female
  Weight: 143.3 kg

DRUGS (5)
  1. BLOOD PRESSURE MEDICATION (NAME UNKNOWN) [Concomitant]
     Indication: HYPERTENSION
     Route: 048
  2. PEGASYS [Concomitant]
     Indication: HEPATITIS C
     Route: 058
     Dates: start: 20120406, end: 20120411
  3. MEDICATION FOR HIGH CHOLESTEROL [Concomitant]
     Indication: BLOOD CHOLESTEROL INCREASED
     Route: 048
  4. INCIVEK [Suspect]
     Indication: HEPATITIS C
     Route: 048
     Dates: start: 20120406, end: 20120411
  5. RIBAVIRIN [Concomitant]
     Indication: HEPATITIS C
     Route: 048
     Dates: start: 20120406, end: 20120411

REACTIONS (4)
  - ASTHENIA [None]
  - BLOOD POTASSIUM DECREASED [None]
  - VOMITING [None]
  - DEHYDRATION [None]
